FAERS Safety Report 21931835 (Version 1)
Quarter: 2023Q1

REPORT INFORMATION
  Report Type: Spontaneous
  Country: US (occurrence: None)
  Receive Date: 20230130
  Receipt Date: 20230130
  Transmission Date: 20230418
  Serious: Yes (Hospitalization)
  Sender: FDA-Public Use
  Company Number: None

PATIENT
  Sex: Male

DRUGS (29)
  1. VERZENIO [Suspect]
     Active Substance: ABEMACICLIB
     Indication: Nausea
     Dosage: 100 MG ORAL ??TAKE 1 TABLET (100 MG TOTAL) BY MOUTH 2 (TWO) TIMES A DAY. MAY BE TAKEN WITH OR WITHOU
     Route: 048
     Dates: start: 20220310
  2. VERZENIO [Suspect]
     Active Substance: ABEMACICLIB
     Indication: Vomiting
     Dosage: FREQUENCY : AS DIRECTED;?
     Route: 048
  3. ABILIFY [Concomitant]
     Active Substance: ARIPIPRAZOLE
  4. ALBUTEROL AER HFA [Concomitant]
  5. ACETAMINOPHEN\CODEINE PHOSPHATE [Concomitant]
     Active Substance: ACETAMINOPHEN\CODEINE PHOSPHATE
  6. ARIPIPRAZOLE [Concomitant]
     Active Substance: ARIPIPRAZOLE
  7. ASPIRIN LOW EC [Concomitant]
  8. BUSPIRONE [Concomitant]
     Active Substance: BUSPIRONE HYDROCHLORIDE
  9. CARBIDOPA\LEVODOPA [Concomitant]
     Active Substance: CARBIDOPA\LEVODOPA
  10. CLONAZEPAM [Concomitant]
     Active Substance: CLONAZEPAM
  11. COMTAN [Concomitant]
     Active Substance: ENTACAPONE
  12. ENTACAPONE [Concomitant]
     Active Substance: ENTACAPONE
  13. FOLIC ACID [Concomitant]
     Active Substance: FOLIC ACID
  14. GABAPENTIN [Concomitant]
     Active Substance: GABAPENTIN
  15. KETOCONAZOLE CRE [Concomitant]
  16. KLONOPIN [Concomitant]
  17. LIPITOR [Concomitant]
     Active Substance: ATORVASTATIN CALCIUM
  18. LOSARTAN POT [Concomitant]
  19. MAGNESIUM [Concomitant]
  20. PRILOSEC [Concomitant]
  21. SINEMET [Concomitant]
     Active Substance: CARBIDOPA\LEVODOPA
  22. SINGULAIR [Concomitant]
     Active Substance: MONTELUKAST SODIUM
  23. SODUM BICAR [Concomitant]
  24. THIAMINE HYDROCHLORIDE [Concomitant]
     Active Substance: THIAMINE HYDROCHLORIDE
  25. TOPAMAX [Concomitant]
     Active Substance: TOPIRAMATE
  26. TRELEGY AER ELLIPTA [Concomitant]
  27. VITAMIN D3 [Concomitant]
     Active Substance: CHOLECALCIFEROL
  28. WELLBURTIN [Concomitant]
  29. ZOLOFT [Concomitant]
     Active Substance: SERTRALINE HYDROCHLORIDE

REACTIONS (2)
  - Anxiety [None]
  - Therapy interrupted [None]
